FAERS Safety Report 11163903 (Version 1)
Quarter: 2015Q2

REPORT INFORMATION
  Report Type: Spontaneous
  Country: US (occurrence: None)
  Receive Date: 20150603
  Receipt Date: 20150603
  Transmission Date: 20150821
  Serious: No
  Sender: FDA-Public Use
  Company Number: None

PATIENT
  Age: 47 Year
  Sex: Female
  Weight: 70.31 kg

DRUGS (2)
  1. ESCITALOPRAM [Suspect]
     Active Substance: ESCITALOPRAM OXALATE
     Indication: DEPRESSION
     Dosage: 1/2 A PILL ONCE DAILY TAKEN BY MOUTH
     Route: 048
     Dates: start: 20150525, end: 20150601
  2. TRAZODONE [Concomitant]
     Active Substance: TRAZODONE HYDROCHLORIDE

REACTIONS (7)
  - Product quality issue [None]
  - Drug dispensing error [None]
  - Headache [None]
  - Dizziness [None]
  - Product substitution issue [None]
  - Depression [None]
  - Incorrect dose administered [None]

NARRATIVE: CASE EVENT DATE: 20150601
